FAERS Safety Report 10258532 (Version 2)
Quarter: 2014Q2

REPORT INFORMATION
  Report Type: Spontaneous
  Country: JP (occurrence: JP)
  Receive Date: 20140625
  Receipt Date: 20140625
  Transmission Date: 20141212
  Serious: Yes (Death, Hospitalization)
  Sender: FDA-Public Use
  Company Number: PHHY2014JP070563

PATIENT
  Age: 75 Year
  Sex: Male

DRUGS (1)
  1. ONBREZ [Suspect]
     Indication: CHRONIC OBSTRUCTIVE PULMONARY DISEASE
     Dosage: 150 UG (DAILY DOSE)
     Route: 055

REACTIONS (2)
  - Pneumonia [Fatal]
  - Chronic obstructive pulmonary disease [Unknown]
